FAERS Safety Report 7558055-1 (Version None)
Quarter: 2011Q2

REPORT INFORMATION
  Report Type: 
  Country: None (occurrence: None)
  Receive Date: 20110620
  Receipt Date: 20110608
  Transmission Date: 20111010
  Serious: Yes (Hospitalization, Other)
  Sender: FDA-Public Use
  Company Number: DE-UCBSA-030060

PATIENT
  Sex: Male

DRUGS (29)
  1. KEPPRA [Suspect]
     Dosage: 2500 MG
     Route: 042
     Dates: start: 20110320, end: 20110301
  2. ACETYLCYSTEINE [Concomitant]
     Dosage: 300 BID
  3. NOVALGIN [Concomitant]
  4. DIGITALIS TAB [Concomitant]
     Indication: ATRIAL FIBRILLATION
  5. DIGIMERCK [Concomitant]
     Dosage: 0.1MG, 1-0-0
  6. MAGNESIUM-VERLA DRG [Concomitant]
     Dosage: 1-0-1
  7. COROTROP [Concomitant]
     Dosage: TYPE OF APPLICATION:PERFUSOR
  8. TRAMAL LONG [Concomitant]
     Dosage: 100MG, 1-0-1
  9. MAGNESIUM [Concomitant]
  10. PANTOPRAZOLE [Concomitant]
     Dosage: 1-0-1
  11. ILOMEDIN [Concomitant]
  12. SUCRALFATE [Concomitant]
  13. LORAZEPAM [Concomitant]
  14. ACETAMINOPHEN [Concomitant]
     Dosage: 4X500-1000 MG
  15. UNIZINK [Concomitant]
  16. KEPPRA [Suspect]
     Dosage: 2000 MG
     Route: 042
     Dates: start: 20110317, end: 20110301
  17. KEPPRA [Suspect]
     Dosage: DOSE UP-TITRATED
     Route: 042
     Dates: start: 20110318, end: 20110301
  18. ZINACEF [Concomitant]
  19. IBUPROFEN TABLETS [Concomitant]
     Dosage: 400MG, 1-0-1
  20. LEVOTHYROXINE SODIUM [Concomitant]
     Dosage: 200MCG, 1-0-0
  21. REKAWAN [Concomitant]
     Dosage: 1G, 1-1-1
  22. CALCIUM CARBONATE [Concomitant]
     Dosage: 500MG, 1-0-0
  23. CLONAZEPAM [Concomitant]
     Indication: GRAND MAL CONVULSION
  24. LASIX [Concomitant]
     Dosage: 20MG, 1-1-0
  25. MARCUMAR [Concomitant]
     Dosage: AFTER INR, 1 TABLET. LAST
     Route: 048
  26. METOPROLOL SUCCINATE [Concomitant]
     Dosage: 1/2-0-1/2
  27. ENALAPRIL MALEATE [Concomitant]
     Dosage: 2.5MG, SUSPENDED
  28. LASIX [Concomitant]
     Dosage: 6X5-20 MG
  29. AMIODARONE HCL [Concomitant]
     Indication: ATRIAL FIBRILLATION
     Dosage: TYPE OF APPLICATION:PERFUSOR, 200MG, 1-0-0

REACTIONS (2)
  - BLOOD AMYLASE INCREASED [None]
  - LIPASE INCREASED [None]
